FAERS Safety Report 11377835 (Version 2)
Quarter: 2015Q3

REPORT INFORMATION
  Report Type: Spontaneous
  Country: US (occurrence: US)
  Receive Date: 20150811
  Receipt Date: 20150903
  Transmission Date: 20151125
  Serious: No
  Sender: FDA-Public Use
  Company Number: US-ELI_LILLY_AND_COMPANY-US200908005033

PATIENT
  Age: 73 Year
  Sex: Male

DRUGS (11)
  1. HYZAAR [Concomitant]
     Active Substance: HYDROCHLOROTHIAZIDE\LOSARTAN POTASSIUM
     Dosage: 100 D/F, UNK
  2. ASPIRIN. [Concomitant]
     Active Substance: ASPIRIN
     Dosage: 81 D/F, UNK
  3. HUMULIN N [Suspect]
     Active Substance: INSULIN HUMAN
     Dosage: 20 U, EACH MORNING
     Dates: start: 2001
  4. HUMALOG [Suspect]
     Active Substance: INSULIN LISPRO
     Dosage: UNK, AS NEEDED
     Dates: start: 2001
  5. HUMALOG [Suspect]
     Active Substance: INSULIN LISPRO
     Dosage: 15 U, DAILY (1/D)
  6. HUMALOG [Suspect]
     Active Substance: INSULIN LISPRO
  7. CRESTOR /01588602/ [Concomitant]
     Dosage: 20 MG, UNK
  8. MULTIVITAMIN [Concomitant]
     Active Substance: VITAMINS
  9. ALLOPURINOL. [Concomitant]
     Active Substance: ALLOPURINOL
     Dosage: 100 MG, UNK
  10. FISH OIL [Concomitant]
     Active Substance: FISH OIL
  11. CARVEDILOL. [Concomitant]
     Active Substance: CARVEDILOL
     Dosage: 125 MG, UNK

REACTIONS (11)
  - Squamous cell carcinoma of skin [Recovered/Resolved]
  - Irritability [Unknown]
  - Blood glucose increased [Recovered/Resolved]
  - Arthritis [Not Recovered/Not Resolved]
  - Overweight [Not Recovered/Not Resolved]
  - Trigger finger [Unknown]
  - Blood glucose decreased [Unknown]
  - Fatigue [Unknown]
  - Feeling abnormal [Unknown]
  - Hand fracture [Unknown]
  - Surgery [Unknown]

NARRATIVE: CASE EVENT DATE: 20081218
